FAERS Safety Report 4933274-9 (Version None)
Quarter: 2006Q1

REPORT INFORMATION
  Report Type: 
  Country: None (occurrence: None)
  Receive Date: 20060306
  Receipt Date: 20051104
  Transmission Date: 20060701
  Serious: Yes (Death)
  Sender: FDA-Public Use
  Company Number: US-MERCK-0511USA01181

PATIENT
  Age: 82 Year
  Sex: Female
  Weight: 59 kg

DRUGS (6)
  1. VIOXX [Suspect]
     Indication: ARTHRALGIA
     Route: 048
     Dates: start: 19990101, end: 20001201
  2. VIOXX [Suspect]
     Indication: ARTHRITIS
     Route: 048
     Dates: start: 19990101, end: 20001201
  3. IBUPROFEN [Concomitant]
     Indication: ARTHRITIS
     Route: 065
     Dates: start: 19900101, end: 20000101
  4. TYLENOL (CAPLET) [Concomitant]
     Indication: ARTHRITIS
     Route: 065
     Dates: start: 19900101, end: 20000101
  5. NORVASC [Concomitant]
     Indication: CHEST PAIN
     Route: 065
  6. PREMARIN [Concomitant]
     Indication: HORMONE REPLACEMENT THERAPY
     Route: 065

REACTIONS (3)
  - DYSPEPSIA [None]
  - LOSS OF CONSCIOUSNESS [None]
  - MYOCARDIAL INFARCTION [None]
